FAERS Safety Report 6049353-1 (Version None)
Quarter: 2009Q1

REPORT INFORMATION
  Report Type: 
  Country: None (occurrence: None)
  Receive Date: 20090123
  Receipt Date: 20090113
  Transmission Date: 20090719
  Serious: Yes (Other)
  Sender: FDA-Public Use
  Company Number: CA-PFIZER INC-2009156275

PATIENT

DRUGS (2)
  1. ZELDOX [Suspect]
     Dosage: 60 MG, 2X/DAY
     Dates: start: 20081201
  2. LYRICA [Suspect]
     Dosage: 50 MG, 3X/DAY
     Dates: start: 20081201

REACTIONS (1)
  - PURPURA [None]
